FAERS Safety Report 5139741-X (Version None)
Quarter: 2006Q4

REPORT INFORMATION
  Report Type: 
  Country: None (occurrence: None)
  Receive Date: 20061024
  Receipt Date: 20061017
  Transmission Date: 20070319
  Serious: Yes (Other)
  Sender: FDA-Public Use
  Company Number: NLWYE254117OCT06

PATIENT
  Sex: 0

DRUGS (1)
  1. RAPAMUNE [Suspect]
     Dosage: 1 MG

REACTIONS (1)
  - URINOMA [None]
